FAERS Safety Report 21272165 (Version 1)
Quarter: 2022Q3

REPORT INFORMATION
  Report Type: Spontaneous
  Country: US (occurrence: US)
  Receive Date: 20220830
  Receipt Date: 20220830
  Transmission Date: 20221027
  Serious: No
  Sender: FDA-Public Use
  Company Number: US-BRAINTREE LABORATORIES, INC.-2022BTE00493

PATIENT
  Age: 65 Year
  Sex: Female
  Weight: 51.247 kg

DRUGS (5)
  1. SUTAB [Suspect]
     Active Substance: MAGNESIUM SULFATE\POTASSIUM CHLORIDE\SODIUM SULFATE
     Indication: Colonoscopy
     Dosage: 1 X 12 TABLETS, 1X
     Dates: start: 20220607, end: 20220607
  2. VITAMIN D3 [Concomitant]
     Active Substance: CHOLECALCIFEROL
     Dosage: 3000 DOSAGE UNITS, 2X/DAY (MORNING AND NIGHT)
     Dates: end: 20220606
  3. EYE CAPS LUTEIN ZEAXANTHIN [Concomitant]
     Dosage: UNK, 2X/DAY
     Dates: end: 20220606
  4. IRON [Concomitant]
     Active Substance: IRON
     Dosage: 9 MG, 1X/DAY
     Dates: end: 20220606
  5. BEVERLY HILLS MD DERMAL REPAIR COMPLEX FOR SKIN [Concomitant]
     Dosage: UNK
     Dates: end: 20220606

REACTIONS (4)
  - Retching [Recovered/Resolved]
  - Dehydration [Recovered/Resolved]
  - Blood pressure increased [Recovered/Resolved]
  - Nausea [Recovered/Resolved]

NARRATIVE: CASE EVENT DATE: 20220607
